FAERS Safety Report 11036096 (Version 2)
Quarter: 2015Q2

REPORT INFORMATION
  Report Type: Spontaneous
  Country: US (occurrence: US)
  Receive Date: 20150415
  Receipt Date: 20150525
  Transmission Date: 20150821
  Serious: Yes (Other)
  Sender: FDA-Public Use
  Company Number: US-JNJFOC-20130707339

PATIENT
  Sex: Male

DRUGS (15)
  1. CELEBREX [Concomitant]
     Active Substance: CELECOXIB
     Dosage: AS NEEDED, USUALLY ONCE A WEEK
     Route: 048
     Dates: start: 20130703
  2. FERROUS SULFATE [Concomitant]
     Active Substance: FERROUS SULFATE\FERROUS SULFATE, DRIED
     Route: 048
  3. CO-Q10 [Concomitant]
     Route: 048
  4. COREG [Concomitant]
     Active Substance: CARVEDILOL
     Dosage: 3/125 MG TAKEN DAILY ORAL
     Route: 048
     Dates: start: 20080528
  5. K-DUR [Concomitant]
     Active Substance: POTASSIUM CHLORIDE
     Route: 048
     Dates: start: 20080528
  6. VITAMIN B12 [Concomitant]
     Active Substance: CYANOCOBALAMIN
     Route: 048
  7. LANOXIN [Concomitant]
     Active Substance: DIGOXIN
     Route: 048
     Dates: start: 20080528
  8. XARELTO [Suspect]
     Active Substance: RIVAROXABAN
     Indication: ATRIAL FIBRILLATION
     Route: 048
     Dates: start: 2013
  9. VITAMIN C [Concomitant]
     Active Substance: ASCORBIC ACID
     Route: 048
  10. ZOCOR [Concomitant]
     Active Substance: SIMVASTATIN
     Route: 048
     Dates: start: 20090317
  11. ENALAPRIL [Concomitant]
     Active Substance: ENALAPRIL
     Route: 048
     Dates: start: 20080528
  12. LASIX [Concomitant]
     Active Substance: FUROSEMIDE
     Route: 048
     Dates: start: 20080528
  13. PROTONIX [Concomitant]
     Active Substance: PANTOPRAZOLE SODIUM
     Route: 048
  14. XARELTO [Suspect]
     Active Substance: RIVAROXABAN
     Indication: CEREBROVASCULAR ACCIDENT PROPHYLAXIS
     Route: 048
     Dates: start: 2013
  15. NIASPAN [Concomitant]
     Active Substance: NIACIN
     Route: 048
     Dates: start: 20080528

REACTIONS (1)
  - Upper gastrointestinal haemorrhage [Unknown]

NARRATIVE: CASE EVENT DATE: 2013
